FAERS Safety Report 23431844 (Version 1)
Quarter: 2024Q1

REPORT INFORMATION
  Report Type: Spontaneous
  Country: GB (occurrence: GB)
  Receive Date: 20240123
  Receipt Date: 20240123
  Transmission Date: 20240410
  Serious: Yes (Disabling)
  Sender: FDA-Public Use
  Company Number: None

PATIENT
  Age: 44 Year
  Weight: 53 kg

DRUGS (17)
  1. PREGABALIN [Suspect]
     Active Substance: PREGABALIN
     Indication: Product used for unknown indication
     Dosage: TAKE ONE TWICE DAILY, INCREASING TO 3 TWICE AS ...
     Route: 065
     Dates: start: 20230721, end: 20230804
  2. ACETAMINOPHEN [Concomitant]
     Active Substance: ACETAMINOPHEN
     Indication: Product used for unknown indication
     Dosage: TAKE ONE OR TWO TABLETS UP TO FOUR TIMES A DAY ...
     Route: 065
     Dates: start: 20230303
  3. EPINEPHRINE BITARTRATE [Concomitant]
     Active Substance: EPINEPHRINE BITARTRATE
     Indication: Product used for unknown indication
     Dosage: USE AS DIRECTED FOR EMERGENCY USE, WEIGHT }30 KG
     Route: 065
     Dates: start: 20211004
  4. OMEPRAZOLE [Concomitant]
     Active Substance: OMEPRAZOLE
     Indication: Product used for unknown indication
     Dosage: TO PROTECT YOUR GUL...
     Route: 065
     Dates: start: 20211004
  5. NORTRIPTYLINE [Concomitant]
     Active Substance: NORTRIPTYLINE
     Indication: Product used for unknown indication
     Dosage: AT NIGHT
     Route: 065
     Dates: start: 20220803
  6. DESOGESTREL [Concomitant]
     Active Substance: DESOGESTREL
     Indication: Product used for unknown indication
     Route: 065
     Dates: start: 20221214
  7. POLYETHYLENE GLYCOL 3350\POTASSIUM CHLORIDE\SODIUM BICARBONATE\SODIUM [Concomitant]
     Active Substance: POLYETHYLENE GLYCOL 3350\POTASSIUM CHLORIDE\SODIUM BICARBONATE\SODIUM CHLORIDE
     Indication: Product used for unknown indication
     Dosage: ONE SACHET ONCE OR TWICE DAILY AS NEEDED FOR CO...
     Route: 065
     Dates: start: 20221214
  8. OXYCODONE HYDROCHLORIDE [Concomitant]
     Active Substance: OXYCODONE HYDROCHLORIDE
     Indication: Product used for unknown indication
     Route: 065
     Dates: start: 20230426
  9. SENNA [Concomitant]
     Active Substance: SENNA LEAF\SENNOSIDES\SENNOSIDES A AND B
     Indication: Product used for unknown indication
     Dosage: AT NIGHT FOR MORPHINE INDUCED C...
     Route: 065
     Dates: start: 20220701
  10. EPINEPHRINE BITARTRATE [Concomitant]
     Active Substance: EPINEPHRINE BITARTRATE
     Indication: Product used for unknown indication
     Dosage: USE AS DIRECTED FOR EMERGENCY TREATMENT OF ALLE...
     Route: 065
     Dates: start: 20221103
  11. PROCHLORPERAZINE [Concomitant]
     Active Substance: PROCHLORPERAZINE
     Indication: Product used for unknown indication
     Dosage: TIME INTERVAL: 0.33333333 DAYS: UP TO THREE TIMES A DAY TO HELP...
     Route: 065
     Dates: start: 20221214
  12. BACLOFEN [Concomitant]
     Active Substance: BACLOFEN
     Indication: Product used for unknown indication
     Dosage: HALF A TABLET THREE TIMES DAY AS NEEDED FOR MUS...
     Route: 065
     Dates: start: 20211004
  13. OXYCODONE HYDROCHLORIDE [Concomitant]
     Active Substance: OXYCODONE HYDROCHLORIDE
     Indication: Product used for unknown indication
     Dosage: TAKE ONE UP TO TWICE A DAY AS ADDITOINAL PAIN R...
     Route: 065
     Dates: start: 20230503, end: 20230721
  14. DIAZEPAM [Concomitant]
     Active Substance: DIAZEPAM
     Indication: Muscle spasms
     Dosage: TIME INTERVAL: AS NECESSARY
     Route: 065
     Dates: start: 20230426
  15. OXYCODONE HYDROCHLORIDE [Concomitant]
     Active Substance: OXYCODONE HYDROCHLORIDE
     Indication: Product used for unknown indication
     Dosage: UP TO 4 TIMES DAILY AS NEEDED FOR PAI...
     Route: 065
     Dates: start: 20230721
  16. NAPROXEN [Concomitant]
     Active Substance: NAPROXEN
     Indication: Product used for unknown indication
     Dosage: WITH FOOD WHEN REQU...
     Route: 065
     Dates: start: 20220520
  17. MIRTAZAPINE [Concomitant]
     Active Substance: MIRTAZAPINE
     Indication: Product used for unknown indication
     Route: 065
     Dates: start: 20220427

REACTIONS (1)
  - Peripheral swelling [Recovering/Resolving]

NARRATIVE: CASE EVENT DATE: 20230804
